FAERS Safety Report 4565174-0 (Version None)
Quarter: 2005Q1

REPORT INFORMATION
  Report Type: 
  Country: None (occurrence: None)
  Receive Date: 20050127
  Receipt Date: 20050127
  Transmission Date: 20050727
  Serious: Yes (Other)
  Sender: FDA-Public Use
  Company Number: None

PATIENT
  Sex: Female
  Weight: 49.8957 kg

DRUGS (7)
  1. ZYPREXA [Suspect]
     Indication: BIPOLAR DISORDER
     Dosage: 20 MG DAILY  (THERAPY DATES: SEE ITEM B5)
     Dates: start: 19980101
  2. ZYPREXA [Suspect]
     Indication: SCHIZOAFFECTIVE DISORDER
     Dosage: 20 MG DAILY  (THERAPY DATES: SEE ITEM B5)
     Dates: start: 19980101
  3. ZYPREXA [Suspect]
     Indication: BIPOLAR DISORDER
     Dosage: 20 MG DAILY  (THERAPY DATES: SEE ITEM B5)
     Dates: start: 20020101
  4. ZYPREXA [Suspect]
     Indication: SCHIZOAFFECTIVE DISORDER
     Dosage: 20 MG DAILY  (THERAPY DATES: SEE ITEM B5)
     Dates: start: 20020101
  5. TRILEPTAL [Concomitant]
  6. COGENTIN [Concomitant]
  7. BENADRYL [Concomitant]

REACTIONS (5)
  - CARDIOVASCULAR DISORDER [None]
  - PARAESTHESIA [None]
  - RASH [None]
  - TARDIVE DYSKINESIA [None]
  - WEIGHT INCREASED [None]
